FAERS Safety Report 4770136-4 (Version None)
Quarter: 2005Q3

REPORT INFORMATION
  Report Type: 
  Country: None (occurrence: None)
  Receive Date: 20050915
  Receipt Date: 20050125
  Transmission Date: 20060218
  Serious: No
  Sender: FDA-Public Use
  Company Number: US-GLAXOSMITHKLINE-A0542094A

PATIENT
  Age: 47 Year
  Sex: Female

DRUGS (1)
  1. ABREVA [Suspect]
     Dates: start: 20050123, end: 20050124

REACTIONS (6)
  - DRUG INEFFECTIVE [None]
  - HERPES SIMPLEX [None]
  - HYPERSENSITIVITY [None]
  - LIP PAIN [None]
  - PRURITUS [None]
  - RASH [None]
